FAERS Safety Report 7251877 (Version 2)
Quarter: 2013Q1

REPORT INFORMATION
  Report Type: Spontaneous
  Country: US (occurrence: None)
  Receive Date: 20100107
  Receipt Date: 20130103
  Transmission Date: 20140127
  Serious: Yes (Hospitalization)
  Sender: FDA-Public Use
  Company Number: 2009AP000004

PATIENT
  Age: 16 Year
  Sex: Female

DRUGS (5)
  1. ALBUTEROL SULFATE [Suspect]
     Indication: ASTHMA
     Route: 055
  2. ALBUTEROL SULFATE [Suspect]
     Indication: CONDITION AGGRAVATED
     Route: 055
  3. IPRATROPIUM BROMIDE [Suspect]
  4. METHYLPREDNISOLONE [Suspect]
  5. MAGNESIUM SULFATE [Concomitant]

REACTIONS (7)
  - Lactic acidosis [None]
  - Nasopharyngitis [None]
  - Tachypnoea [None]
  - Tachycardia [None]
  - Lung hyperinflation [None]
  - Metabolic acidosis [None]
  - Blood pressure increased [None]
